FAERS Safety Report 12313827 (Version 1)
Quarter: 2016Q2

REPORT INFORMATION
  Report Type: Spontaneous
  Country: US (occurrence: US)
  Receive Date: 20160428
  Receipt Date: 20160428
  Transmission Date: 20160815
  Serious: No
  Sender: FDA-Public Use
  Company Number: US-BAUSCH-BL-2015-015675

PATIENT
  Sex: Male

DRUGS (2)
  1. ZYCLARA [Suspect]
     Active Substance: IMIQUIMOD
     Indication: ACTINIC KERATOSIS
  2. ZYCLARA [Suspect]
     Active Substance: IMIQUIMOD
     Dates: start: 201502

REACTIONS (2)
  - Erythema multiforme [Recovered/Resolved]
  - Scab [Unknown]

NARRATIVE: CASE EVENT DATE: 2015
